FAERS Safety Report 19956000 (Version 1)
Quarter: 2021Q4

REPORT INFORMATION
  Report Type: Spontaneous
  Country: GB (occurrence: GB)
  Receive Date: 20211014
  Receipt Date: 20211014
  Transmission Date: 20220303
  Serious: Yes (Other)
  Sender: FDA-Public Use
  Company Number: None

PATIENT
  Age: 34 Year
  Sex: Female

DRUGS (6)
  1. PREGABALIN [Suspect]
     Active Substance: PREGABALIN
     Indication: Epilepsy
     Route: 048
  2. BRIVARACETAM [Concomitant]
     Active Substance: BRIVARACETAM
  3. CYPROTERONE ACETATE\ETHINYL ESTRADIOL [Concomitant]
     Active Substance: CYPROTERONE ACETATE\ETHINYL ESTRADIOL
  4. DIAZEPAM [Concomitant]
     Active Substance: DIAZEPAM
  5. OMEPRAZOLE [Concomitant]
     Active Substance: OMEPRAZOLE
  6. MIRTAZAPINE [Concomitant]
     Active Substance: MIRTAZAPINE
     Dosage: 15MG

REACTIONS (3)
  - Insomnia [Not Recovered/Not Resolved]
  - Headache [Unknown]
  - Panic attack [Unknown]
